FAERS Safety Report 9337012 (Version 1)
Quarter: 2013Q2

REPORT INFORMATION
  Report Type: Spontaneous
  Country: US (occurrence: US)
  Receive Date: 20130607
  Receipt Date: 20130607
  Transmission Date: 20140414
  Serious: Yes (Hospitalization, Other)
  Sender: FDA-Public Use
  Company Number: US-ROXANE LABORATORIES, INC.-2013-RO-00876RO

PATIENT
  Age: 24 Year
  Sex: Female

DRUGS (4)
  1. METHADONE [Suspect]
  2. CATAPRES [Suspect]
  3. CLONAZEPAM [Suspect]
  4. IRON [Suspect]
     Indication: MINERAL SUPPLEMENTATION

REACTIONS (4)
  - Premature labour [Unknown]
  - Premature rupture of membranes [Unknown]
  - Premature delivery [Unknown]
  - Herpes simplex [Unknown]
